FAERS Safety Report 17331653 (Version 2)
Quarter: 2020Q1

REPORT INFORMATION
  Report Type: Spontaneous
  Country: EG (occurrence: EG)
  Receive Date: 20200128
  Receipt Date: 20200303
  Transmission Date: 20200409
  Serious: Yes (Death, Other)
  Sender: FDA-Public Use
  Company Number: EG-INCYTE CORPORATION-2020IN000740

PATIENT

DRUGS (1)
  1. JAKAVI [Suspect]
     Active Substance: RUXOLITINIB
     Indication: MYELOFIBROSIS
     Dosage: UNK UNK, BID
     Route: 048

REACTIONS (3)
  - Respiratory failure [Fatal]
  - Cardiac disorder [Fatal]
  - Hepatitis B [Unknown]
